FAERS Safety Report 26128262 (Version 1)
Quarter: 2025Q4

REPORT INFORMATION
  Report Type: Spontaneous
  Country: EU (occurrence: EU)
  Receive Date: 20251207
  Receipt Date: 20251207
  Transmission Date: 20260118
  Serious: Yes (Other)
  Sender: ASTELLAS
  Company Number: EU-ASTELLAS-2025-AER-065922

PATIENT
  Age: 64 Year
  Sex: Female

DRUGS (2)
  1. GILTERITINIB [Suspect]
     Active Substance: GILTERITINIB
     Indication: Acute myeloid leukaemia recurrent
     Route: 065
  2. GILTERITINIB [Suspect]
     Active Substance: GILTERITINIB
     Dosage: REDUCED DOSE
     Route: 065

REACTIONS (6)
  - Graft versus host disease in skin [Unknown]
  - Pneumonia respiratory syncytial viral [Unknown]
  - Thrombocytopenia [Unknown]
  - Pancreatic toxicity [Unknown]
  - Musculoskeletal toxicity [Unknown]
  - Anaemia [Unknown]
